FAERS Safety Report 16023875 (Version 1)
Quarter: 2019Q1

REPORT INFORMATION
  Report Type: Spontaneous
  Country: FR (occurrence: FR)
  Receive Date: 20190301
  Receipt Date: 20190301
  Transmission Date: 20190418
  Serious: Yes (Death, Other)
  Sender: FDA-Public Use
  Company Number: FR-PFIZER INC-2019085840

PATIENT
  Age: 79 Year
  Sex: Male
  Weight: 78 kg

DRUGS (11)
  1. COAPROVEL [Suspect]
     Active Substance: HYDROCHLOROTHIAZIDE\IRBESARTAN
     Indication: HYPERTENSION
     Dosage: 1 DF, 1X/DAY (STRENGTH: 300 MG/12.5 MG)
     Route: 048
     Dates: end: 20180418
  2. RIFAMPICINE [Suspect]
     Active Substance: RIFAMPIN
     Indication: OSTEITIS
     Dosage: 900 MG, 1X/DAY
     Route: 048
     Dates: start: 20180410, end: 20180418
  3. ESOMEPRAZOLE MAGNESIUM. [Suspect]
     Active Substance: ESOMEPRAZOLE MAGNESIUM
     Dosage: 20 MG, 1X/DAY
     Route: 048
     Dates: end: 20180418
  4. CLAMOXYL [AMOXICILLIN TRIHYDRATE] [Suspect]
     Active Substance: AMOXICILLIN
     Indication: OSTEITIS
     Dosage: 8 G, 1X/DAY
     Route: 048
     Dates: start: 20180409, end: 20180418
  5. DIAMICRON [Suspect]
     Active Substance: GLICLAZIDE
     Indication: TYPE 2 DIABETES MELLITUS
     Dosage: 60 MG (2 DF), 1X/DAY
     Route: 048
     Dates: end: 20180418
  6. AMLODIPINE [Suspect]
     Active Substance: AMLODIPINE BESYLATE
     Indication: HYPERTENSION
     Dosage: 10 MG, 1X/DAY
     Route: 048
     Dates: end: 20180418
  7. INNOHEP [Suspect]
     Active Substance: TINZAPARIN SODIUM
     Indication: PERIPHERAL ARTERY BYPASS
     Dosage: 0.7 ML, 1X/DAY
     Route: 058
     Dates: start: 20180404, end: 20180418
  8. METFORMINE [METFORMIN] [Suspect]
     Active Substance: METFORMIN HYDROCHLORIDE
     Indication: TYPE 2 DIABETES MELLITUS
     Dosage: 3000 MG, 1X/DAY
     Route: 048
     Dates: end: 20180418
  9. IXPRIM [Suspect]
     Active Substance: ACETAMINOPHEN\TRAMADOL HYDROCHLORIDE
     Indication: PAIN
     Dosage: UNK
     Route: 048
     Dates: end: 20180418
  10. KARDEGIC [Suspect]
     Active Substance: ASPIRIN DL-LYSINE
     Indication: ARTERIAL DISORDER
     Dosage: 75 MG (1 DF ), 1X/DAY
     Route: 048
     Dates: start: 20180401, end: 20180418
  11. DETENSIEL [BISOPROLOL FUMARATE] [Suspect]
     Active Substance: BISOPROLOL FUMARATE
     Indication: HYPERTENSION
     Dosage: 10 MG (DF), 1X/DAY
     Route: 048
     Dates: end: 20180418

REACTIONS (4)
  - Acute kidney injury [Fatal]
  - Septic shock [Fatal]
  - Hyperkalaemia [Recovered/Resolved]
  - Lactic acidosis [Fatal]

NARRATIVE: CASE EVENT DATE: 20180418
